FAERS Safety Report 10019113 (Version 1)
Quarter: 2014Q1

REPORT INFORMATION
  Report Type: Spontaneous
  Country: US (occurrence: None)
  Receive Date: 20140314
  Receipt Date: 20140314
  Transmission Date: 20141002
  Serious: No
  Sender: FDA-Public Use
  Company Number: None

PATIENT
  Age: 22 Year
  Sex: Female
  Weight: 89.81 kg

DRUGS (2)
  1. ATOVAQUONE/PROGUANIL [Suspect]
     Indication: MALARIA PROPHYLAXIS
     Dosage: 1 TABLET  QD  ORAL
     Route: 048
     Dates: start: 20131210, end: 20131217
  2. AMARIS PUMP USING NOVOLOG INSULIN [Concomitant]

REACTIONS (8)
  - Dysuria [None]
  - Tremor [None]
  - Feeling jittery [None]
  - Anxiety [None]
  - Dizziness [None]
  - Palpitations [None]
  - Heart rate increased [None]
  - Enuresis [None]
